FAERS Safety Report 25974801 (Version 2)
Quarter: 2025Q4

REPORT INFORMATION
  Report Type: Spontaneous
  Country: EU (occurrence: EU)
  Receive Date: 20251029
  Receipt Date: 20251114
  Transmission Date: 20260118
  Serious: Yes (Other)
  Sender: TEVA
  Company Number: EU-TEVA-VS-3385876

PATIENT
  Age: 53 Year
  Sex: Female

DRUGS (5)
  1. FUSIDIC ACID [Suspect]
     Active Substance: FUSIDIC ACID
     Indication: Granuloma
     Route: 061
  2. FUSIDIC ACID [Suspect]
     Active Substance: FUSIDIC ACID
     Indication: Granuloma
     Dosage: FURTHER INCREASED TWICE AT ONE-MONTH INTERVAL
     Route: 061
  3. TRIAMCINOLONE [Suspect]
     Active Substance: TRIAMCINOLONE
     Indication: Granuloma
     Route: 026
  4. ALLOPURINOL [Suspect]
     Active Substance: ALLOPURINOL
     Indication: Granuloma
     Dosage: TIME INTERVAL: 0.33333333 DAYS: IN ANIONIC OIL-IN-WATER EMULSION
     Route: 061
  5. BETAMETHASONE [Suspect]
     Active Substance: BETAMETHASONE
     Indication: Granuloma
     Route: 061

REACTIONS (2)
  - Skin irritation [Recovered/Resolved]
  - Drug ineffective [Unknown]
